FAERS Safety Report 5693676-2 (Version None)
Quarter: 2008Q2

REPORT INFORMATION
  Report Type: 
  Country: None (occurrence: None)
  Receive Date: 20080403
  Receipt Date: 20080321
  Transmission Date: 20081010
  Serious: Yes (Hospitalization, Other)
  Sender: FDA-Public Use
  Company Number: JP-MERCK-0803USA00633

PATIENT
  Age: 64 Year
  Sex: Male
  Weight: 75 kg

DRUGS (3)
  1. TIMOPTIC [Suspect]
     Indication: OCULAR HYPERTENSION
     Route: 047
     Dates: start: 20060101, end: 20080303
  2. DIOVAN [Concomitant]
     Indication: HYPERTENSION
     Route: 048
     Dates: start: 20071101
  3. AMLODIN [Concomitant]
     Indication: HYPERTENSION
     Route: 048
     Dates: start: 20071101

REACTIONS (2)
  - BRADYCARDIA [None]
  - LOSS OF CONSCIOUSNESS [None]
